FAERS Safety Report 7716399-4 (Version None)
Quarter: 2011Q3

REPORT INFORMATION
  Report Type: 
  Country: None (occurrence: None)
  Receive Date: 20110829
  Receipt Date: 20110818
  Transmission Date: 20111222
  Serious: Yes (Hospitalization, Other)
  Sender: FDA-Public Use
  Company Number: US-MERCK-1102USA02272

PATIENT
  Age: 52 Year
  Sex: Female
  Weight: 52 kg

DRUGS (43)
  1. FOSAMAX [Suspect]
     Indication: OSTEOPOROSIS
     Route: 048
     Dates: start: 20000101, end: 20070701
  2. FOSAMAX PLUS D [Suspect]
     Indication: OSTEOPENIA
     Route: 048
     Dates: start: 20070801, end: 20081001
  3. METHYLPRED ORAL [Concomitant]
     Indication: HYPERSENSITIVITY
     Route: 065
  4. CALCIUM (UNSPECIFIED) [Concomitant]
     Route: 065
  5. CYANOCOBALAMIN [Concomitant]
     Route: 065
  6. PNEUMOCOCCAL VACCINE (UNSPECIFIED) [Concomitant]
     Route: 065
     Dates: start: 20070101
  7. ONE-A-DAY ESSENTIAL VITAMINS [Concomitant]
     Route: 065
  8. FOSAMAX [Suspect]
     Route: 048
     Dates: start: 20000113
  9. FOSAMAX [Suspect]
     Route: 048
     Dates: start: 20081001, end: 20100401
  10. VITAMIN E [Concomitant]
     Route: 065
  11. CALCIUM (UNSPECIFIED) AND VITAMIN D (UNSPECIFIED) [Concomitant]
     Route: 048
  12. ANALGESIC (UNSPECIFIED) [Concomitant]
     Route: 065
  13. [THERAPY UNSPECIFIED] [Concomitant]
     Route: 065
  14. FOSAMAX PLUS D [Suspect]
     Route: 065
  15. FOSAMAX [Suspect]
     Indication: OSTEOPENIA
     Route: 048
     Dates: start: 20000101, end: 20070701
  16. FOSAMAX [Suspect]
     Route: 048
  17. ASCORBIC ACID [Concomitant]
     Route: 065
  18. IRON (UNSPECIFIED) [Concomitant]
     Route: 048
  19. LOVAZA [Concomitant]
     Route: 065
  20. CITRICAL [Concomitant]
     Route: 065
  21. VITAMINS (UNSPECIFIED) [Concomitant]
     Route: 065
  22. FOSAMAX [Suspect]
     Route: 048
     Dates: start: 20081001, end: 20100401
  23. FOSAMAX PLUS D [Suspect]
     Indication: OSTEOPOROSIS
     Route: 048
     Dates: start: 20070801, end: 20081001
  24. CORTICOSTEROIDS (UNSPECIFIED) [Concomitant]
     Route: 065
     Dates: start: 20050101, end: 20110101
  25. EVISTA [Concomitant]
     Route: 048
     Dates: start: 20070101, end: 20070101
  26. ANTIMICROBIAL (UNSPECIFIED) [Concomitant]
     Route: 065
  27. ALLEGRA [Concomitant]
     Indication: HYPERSENSITIVITY
     Route: 065
  28. FOSAMAX [Suspect]
     Route: 048
  29. FOSAMAX [Suspect]
     Route: 048
     Dates: start: 20000113
  30. FOSAMAX PLUS D [Suspect]
     Route: 065
  31. EVISTA [Concomitant]
     Indication: OSTEOPOROSIS
     Route: 065
     Dates: start: 20070101, end: 20070101
  32. FOLIC ACID [Concomitant]
     Route: 065
  33. CITRUCEL (METHYLCELLULOSE) [Concomitant]
     Route: 065
  34. CHOLECALCIFEROL [Concomitant]
     Route: 065
  35. IRON (UNSPECIFIED) [Concomitant]
     Route: 065
     Dates: start: 20050401, end: 20050501
  36. BONIVA [Concomitant]
     Indication: OSTEOPOROSIS
     Route: 065
     Dates: start: 20100319
  37. PREMARIN [Concomitant]
     Indication: HORMONE THERAPY
     Route: 065
     Dates: start: 20040101, end: 20060101
  38. CLARINEX [Concomitant]
     Indication: HYPERSENSITIVITY
     Route: 048
  39. OMEGA-3 MARINE TRIGLYCERIDES [Concomitant]
     Route: 065
  40. CALCIUM CITRATE [Concomitant]
     Route: 065
  41. VITAMIN D (UNSPECIFIED) [Concomitant]
     Route: 065
  42. INFLUENZA VIRUS VACCINE (UNSPECIFIED) [Concomitant]
     Route: 065
     Dates: start: 20080101
  43. EFFEXOR [Concomitant]
     Route: 048

REACTIONS (30)
  - OSTEOARTHRITIS [None]
  - BLOOD TRIGLYCERIDES INCREASED [None]
  - NASOPHARYNGITIS [None]
  - GASTROENTERITIS [None]
  - IRON DEFICIENCY ANAEMIA [None]
  - CHANGE OF BOWEL HABIT [None]
  - LICHEN SCLEROSUS [None]
  - ARTHRITIS [None]
  - MIGRAINE [None]
  - FIBROCYSTIC BREAST DISEASE [None]
  - SHIGELLA INFECTION [None]
  - DRUG HYPERSENSITIVITY [None]
  - GINGIVAL PAIN [None]
  - GASTROINTESTINAL DISORDER [None]
  - VITAMIN D DEFICIENCY [None]
  - CARDIAC FAILURE CONGESTIVE [None]
  - PAIN IN EXTREMITY [None]
  - MORTON'S NEUROMA [None]
  - FIBROADENOMA OF BREAST [None]
  - ANASTOMOTIC ULCER [None]
  - ABDOMINAL PAIN UPPER [None]
  - OCCULT BLOOD POSITIVE [None]
  - ACUTE SINUSITIS [None]
  - ARTHRALGIA [None]
  - DRUG INEFFECTIVE [None]
  - FALL [None]
  - HOT FLUSH [None]
  - HAEMORRHAGIC DISORDER [None]
  - BREAST PAIN [None]
  - FEMUR FRACTURE [None]
